FAERS Safety Report 7410834-7 (Version None)
Quarter: 2011Q2

REPORT INFORMATION
  Report Type: 
  Country: None (occurrence: None)
  Receive Date: 20110413
  Receipt Date: 20110407
  Transmission Date: 20111010
  Serious: No
  Sender: FDA-Public Use
  Company Number: US-PFIZER INC-2011060451

PATIENT
  Sex: Female
  Weight: 70.295 kg

DRUGS (2)
  1. TOVIAZ [Suspect]
     Indication: BLADDER IRRITATION
  2. TOVIAZ [Suspect]
     Indication: HYPERTONIC BLADDER
     Dosage: 4 MG, DAILY
     Route: 048
     Dates: start: 20110316

REACTIONS (3)
  - DRY MOUTH [None]
  - CHOKING SENSATION [None]
  - DRY THROAT [None]
